FAERS Safety Report 16164865 (Version 2)
Quarter: 2019Q2

REPORT INFORMATION
  Report Type: Spontaneous
  Country: CH (occurrence: CH)
  Receive Date: 20190405
  Receipt Date: 20190415
  Transmission Date: 20190711
  Serious: Yes (Other)
  Sender: FDA-Public Use
  Company Number: CH-OTSUKA-2019_009326

PATIENT
  Age: 48 Year
  Sex: Female

DRUGS (1)
  1. JINARC [Suspect]
     Active Substance: TOLVAPTAN
     Indication: CONGENITAL CYSTIC KIDNEY DISEASE
     Dosage: UNK
     Route: 048
     Dates: start: 201612

REACTIONS (7)
  - Road traffic accident [Unknown]
  - Craniofacial fracture [Unknown]
  - Restless legs syndrome [Unknown]
  - Menorrhagia [Unknown]
  - Concussion [Unknown]
  - Radius fracture [Unknown]
  - Iron deficiency anaemia [Unknown]

NARRATIVE: CASE EVENT DATE: 20180422
